FAERS Safety Report 10549458 (Version 3)
Quarter: 2015Q4

REPORT INFORMATION
  Report Type: Spontaneous
  Country: US (occurrence: US)
  Receive Date: 20141028
  Receipt Date: 20151005
  Transmission Date: 20160304
  Serious: Yes (Hospitalization, Other)
  Sender: FDA-Public Use
  Company Number: US-BAYER-2014-158840

PATIENT
  Age: 31 Year
  Sex: Female
  Weight: 52.15 kg

DRUGS (4)
  1. BACTRIM [Concomitant]
     Active Substance: SULFAMETHOXAZOLE\TRIMETHOPRIM
     Dosage: 400MG TO 80MG
  2. MIRENA [Suspect]
     Active Substance: LEVONORGESTREL
     Indication: CONTRACEPTION
     Dosage: 20 MCG/24HR, CONT
     Route: 015
     Dates: start: 20101215, end: 20121114
  3. MIRENA [Suspect]
     Active Substance: LEVONORGESTREL
     Indication: MENORRHAGIA
  4. MOTRIN [Concomitant]
     Active Substance: IBUPROFEN

REACTIONS (6)
  - Injury [None]
  - Uterine perforation [None]
  - Pain [None]
  - Abdominal pain lower [None]
  - Device difficult to use [None]
  - Nephrolithiasis [None]

NARRATIVE: CASE EVENT DATE: 201210
